FAERS Safety Report 22603528 (Version 1)
Quarter: 2023Q2

REPORT INFORMATION
  Report Type: Report from Study
  Country: CA (occurrence: CA)
  Receive Date: 20230615
  Receipt Date: 20230615
  Transmission Date: 20230722
  Serious: Yes (Other)
  Sender: FDA-Public Use
  Company Number: CA-002147023-NVSC2023CA133972

PATIENT
  Age: 77 Year
  Sex: Female

DRUGS (1)
  1. FULVESTRANT [Suspect]
     Active Substance: FULVESTRANT
     Indication: Product used for unknown indication
     Dosage: 250 MG, OTHER (Q28DAYS)
     Route: 030
     Dates: start: 20211028

REACTIONS (3)
  - Neoplasm malignant [Unknown]
  - Hair texture abnormal [Not Recovered/Not Resolved]
  - Alopecia [Not Recovered/Not Resolved]
